FAERS Safety Report 9552376 (Version 1)
Quarter: 2013Q3

REPORT INFORMATION
  Report Type: Spontaneous
  Country: US (occurrence: US)
  Receive Date: 20130925
  Receipt Date: 20130925
  Transmission Date: 20140515
  Serious: Yes (Death)
  Sender: FDA-Public Use
  Company Number: US-ASTELLAS-2013US010041

PATIENT
  Age: 83 Year
  Sex: Female

DRUGS (1)
  1. PROGRAF [Suspect]
     Indication: RENAL TRANSPLANT
     Dosage: 2 MG EVERY 12HOURS AND 0.5 MG EVERY EVENING
     Route: 048
     Dates: start: 20070410, end: 20130914

REACTIONS (1)
  - Death [Fatal]
